FAERS Safety Report 4714721-4 (Version None)
Quarter: 2005Q3

REPORT INFORMATION
  Report Type: 
  Country: None (occurrence: None)
  Receive Date: 20050715
  Receipt Date: 20050621
  Transmission Date: 20060218
  Serious: Yes (Other)
  Sender: FDA-Public Use
  Company Number: JP-BRISTOL-MYERS SQUIBB COMPANY-13038047

PATIENT
  Age: 42 Year
  Sex: Male

DRUGS (7)
  1. ENDOXAN [Suspect]
     Indication: TESTIS CANCER
  2. CISPLATIN [Suspect]
     Indication: TESTIS CANCER
  3. BLEOMYCIN SULFATE [Suspect]
     Indication: TESTIS CANCER
  4. ETOPOSIDE [Suspect]
     Indication: TESTIS CANCER
  5. METHOTREXATE [Suspect]
     Indication: TESTIS CANCER
  6. VINBLASTINE [Suspect]
     Indication: TESTIS CANCER
  7. DACTINOMYCIN [Suspect]
     Indication: TESTIS CANCER

REACTIONS (1)
  - RENAL CELL CARCINOMA STAGE UNSPECIFIED [None]
